FAERS Safety Report 17710085 (Version 1)
Quarter: 2020Q2

REPORT INFORMATION
  Report Type: Spontaneous
  Country: PL (occurrence: PL)
  Receive Date: 20200427
  Receipt Date: 20200427
  Transmission Date: 20200714
  Serious: Yes (Life-Threatening)
  Sender: FDA-Public Use
  Company Number: PL-BAUSCH-BL-2020-011921

PATIENT
  Age: 53 Year
  Sex: Female
  Weight: 62 kg

DRUGS (7)
  1. CORHYDRON (HYDROCORTISONE) [Suspect]
     Active Substance: HYDROCORTISONE
     Indication: RASH MACULO-PAPULAR
  2. CLEMASTINE [Concomitant]
     Active Substance: CLEMASTINE
     Indication: PRODUCT USED FOR UNKNOWN INDICATION
  3. PRESTARIUM [Concomitant]
     Active Substance: PERINDOPRIL
     Indication: PRODUCT USED FOR UNKNOWN INDICATION
  4. LYRICA [Concomitant]
     Active Substance: PREGABALIN
     Indication: PRODUCT USED FOR UNKNOWN INDICATION
  5. OXYNORM [Concomitant]
     Active Substance: OXYCODONE HYDROCHLORIDE
     Indication: PRODUCT USED FOR UNKNOWN INDICATION
  6. CORHYDRON (HYDROCORTISONE) [Suspect]
     Active Substance: HYDROCORTISONE
     Indication: BREAST CANCER METASTATIC
     Dosage: 100 MG - SINGLE DOSE
     Route: 042
     Dates: start: 20170629, end: 20170629
  7. TORASEMID [Concomitant]
     Active Substance: TORSEMIDE
     Indication: PRODUCT USED FOR UNKNOWN INDICATION

REACTIONS (1)
  - Angioedema [Recovering/Resolving]

NARRATIVE: CASE EVENT DATE: 20170629
